FAERS Safety Report 8532014-4 (Version None)
Quarter: 2012Q3

REPORT INFORMATION
  Report Type: 
  Country: None (occurrence: None)
  Receive Date: 20120723
  Receipt Date: 20120718
  Transmission Date: 20120928
  Serious: Yes (Hospitalization, Other)
  Sender: FDA-Public Use
  Company Number: PHHY2012GB061618

PATIENT
  Age: 44 Year
  Sex: Female
  Weight: 50 kg

DRUGS (2)
  1. DOXYCYCLINE [Suspect]
     Indication: OTITIS MEDIA ACUTE
     Dosage: 200 MG, UNK
     Route: 048
     Dates: start: 20120622, end: 20120622
  2. LEVOTHYROXINE SODIUM [Concomitant]

REACTIONS (3)
  - NAUSEA [None]
  - URINARY TRACT INFECTION [None]
  - DRUG-INDUCED LIVER INJURY [None]
